FAERS Safety Report 24729456 (Version 1)
Quarter: 2024Q4

REPORT INFORMATION
  Report Type: Spontaneous
  Country: US (occurrence: US)
  Receive Date: 20241213
  Receipt Date: 20241213
  Transmission Date: 20250115
  Serious: No
  Sender: ACCORD
  Company Number: US-Accord-421461

PATIENT
  Age: 63 Year
  Sex: Female

DRUGS (1)
  1. LEVOTHYROXINE SODIUM [Suspect]
     Active Substance: LEVOTHYROXINE SODIUM
     Indication: Hypothyroidism
     Dosage: STRENGTH: 125 MCG, MOUTH DAILY, PILLS
     Dates: start: 202310

REACTIONS (3)
  - Pruritus [Not Recovered/Not Resolved]
  - Dyspnoea [Not Recovered/Not Resolved]
  - Nasal pruritus [Not Recovered/Not Resolved]

NARRATIVE: CASE EVENT DATE: 20231001
